FAERS Safety Report 13871620 (Version 1)
Quarter: 2017Q3

REPORT INFORMATION
  Report Type: Spontaneous
  Country: US (occurrence: US)
  Receive Date: 20170816
  Receipt Date: 20170816
  Transmission Date: 20171127
  Serious: No
  Sender: FDA-Public Use
  Company Number: US-ALLERGAN-1725827US

PATIENT
  Sex: Female

DRUGS (4)
  1. HUMIRA [Suspect]
     Active Substance: ADALIMUMAB
     Dosage: 80 MG, SINGLE
     Route: 058
     Dates: start: 20170519, end: 20170519
  2. HUMIRA [Suspect]
     Active Substance: ADALIMUMAB
     Indication: CROHN^S DISEASE
     Dosage: 40 MG, SINGLE
     Route: 058
     Dates: start: 20170504, end: 20170504
  3. CELEXA [Suspect]
     Active Substance: CITALOPRAM HYDROBROMIDE
     Indication: PRODUCT USED FOR UNKNOWN INDICATION
     Dosage: UNK
     Route: 065
  4. HUMIRA [Suspect]
     Active Substance: ADALIMUMAB
     Dosage: 40 MG, SINGLE
     Route: 058
     Dates: start: 20170603, end: 20170603

REACTIONS (10)
  - Depressed mood [Unknown]
  - Pyrexia [Unknown]
  - Abdominal pain [Unknown]
  - Decreased appetite [Unknown]
  - Constipation [Unknown]
  - Weight decreased [Unknown]
  - Rectal haemorrhage [Unknown]
  - Nausea [Unknown]
  - Anxiety [Unknown]
  - Insomnia [Unknown]
